FAERS Safety Report 5286603-3 (Version None)
Quarter: 2007Q2

REPORT INFORMATION
  Report Type: 
  Country: None (occurrence: None)
  Receive Date: 20070404
  Receipt Date: 20070403
  Transmission Date: 20071010
  Serious: Yes (Life-Threatening, Hospitalization, Disabling, Other)
  Sender: FDA-Public Use
  Company Number: US-GLAXOSMITHKLINE-A0644667A

PATIENT
  Sex: Female

DRUGS (5)
  1. LAMICTAL [Suspect]
     Indication: BIPOLAR DISORDER
     Dosage: 25MG PER DAY
     Route: 048
     Dates: start: 20050801
  2. AMOXICILLIN [Suspect]
  3. LEXAPRO [Concomitant]
  4. DIFLUCAN [Concomitant]
  5. SULFA EYE DROPS [Concomitant]

REACTIONS (9)
  - BACK PAIN [None]
  - CONJUNCTIVITIS [None]
  - DYSPAREUNIA [None]
  - EYE DISORDER [None]
  - PRURITUS GENITAL [None]
  - SCAR [None]
  - SINUSITIS [None]
  - SKIN DISORDER [None]
  - STEVENS-JOHNSON SYNDROME [None]
